FAERS Safety Report 25779733 (Version 1)
Quarter: 2025Q3

REPORT INFORMATION
  Report Type: Spontaneous
  Country: US (occurrence: US)
  Receive Date: 20250909
  Receipt Date: 20250909
  Transmission Date: 20251020
  Serious: No
  Sender: AZURITY PHARMACEUTICALS
  Company Number: US-AZURITY PHARMACEUTICALS, INC.-AZR202506-001598

PATIENT
  Age: 7 Year
  Sex: Female

DRUGS (1)
  1. KONVOMEP [Suspect]
     Active Substance: OMEPRAZOLE\SODIUM BICARBONATE
     Indication: Product used for unknown indication
     Route: 065

REACTIONS (2)
  - Product use issue [Unknown]
  - Product storage error [Unknown]
